FAERS Safety Report 24115762 (Version 2)
Quarter: 2024Q3

REPORT INFORMATION
  Report Type: Spontaneous
  Country: US (occurrence: US)
  Receive Date: 20240721
  Receipt Date: 20240730
  Transmission Date: 20241017
  Serious: No
  Sender: BAYER
  Company Number: US-BAYER-2024A104059

PATIENT
  Age: 22 Year
  Sex: Female
  Weight: 61.9 kg

DRUGS (4)
  1. KYLEENA [Suspect]
     Active Substance: LEVONORGESTREL
     Indication: Intrauterine contraception
     Dosage: 17.5?G/DAY
     Route: 015
     Dates: start: 202112, end: 20240627
  2. MINOCYCLINE [Concomitant]
     Active Substance: MINOCYCLINE HYDROCHLORIDE
     Dosage: 2 DF, QD
     Route: 048
     Dates: start: 20231120
  3. SERTRALINE [Concomitant]
     Active Substance: SERTRALINE HYDROCHLORIDE
     Dosage: UNK
     Route: 048
     Dates: start: 20231226
  4. TRETINOIN [Concomitant]
     Active Substance: TRETINOIN
     Indication: Acne
     Dosage: 0.025 %
     Route: 061
     Dates: start: 20231226

REACTIONS (8)
  - Device dislocation [Recovered/Resolved]
  - Dysmenorrhoea [None]
  - Menstruation irregular [None]
  - Abdominal pain lower [None]
  - Dyspareunia [None]
  - Pelvic pain [None]
  - Adnexa uteri cyst [None]
  - Ovarian cyst [None]
